FAERS Safety Report 10357857 (Version 1)
Quarter: 2014Q3

REPORT INFORMATION
  Report Type: Spontaneous
  Country: US (occurrence: None)
  Receive Date: 20140730
  Receipt Date: 20140730
  Transmission Date: 20150326
  Serious: Yes (Other)
  Sender: FDA-Public Use
  Company Number: IPC201407-000385

PATIENT
  Age: 62 Year
  Sex: Female
  Weight: 90 kg

DRUGS (1)
  1. HYDROXYCHLOROQUINE SULFATE. [Suspect]
     Active Substance: HYDROXYCHLOROQUINE SULFATE
     Indication: ARTHRITIS
     Dates: start: 20140521

REACTIONS (8)
  - Drug hypersensitivity [None]
  - Dry skin [None]
  - Speech disorder [None]
  - Lip haemorrhage [None]
  - Urinary tract infection [None]
  - Skin disorder [None]
  - Dry eye [None]
  - Chapped lips [None]

NARRATIVE: CASE EVENT DATE: 201406
